FAERS Safety Report 8247224-3 (Version None)
Quarter: 2012Q1

REPORT INFORMATION
  Report Type: 
  Country: None (occurrence: None)
  Receive Date: 20120330
  Receipt Date: 20120320
  Transmission Date: 20120608
  Serious: Yes (Life-Threatening)
  Sender: FDA-Public Use
  Company Number: SE-SHIRE-ALL1-2012-01635

PATIENT
  Age: 73 Year
  Sex: Female

DRUGS (9)
  1. PULMICORT [Concomitant]
     Indication: ASTHMA
     Dosage: 2 ML, UNKNOWN
     Route: 065
  2. SINGULAIR [Concomitant]
     Indication: PRODUCT USED FOR UNKNOWN INDICATION
     Dosage: 3 DF, UNKNOWN
     Route: 065
  3. SYMBICORT [Concomitant]
     Indication: PRODUCT USED FOR UNKNOWN INDICATION
     Dosage: 2 DF, UNKNOWN
     Route: 048
  4. OXYGEN [Concomitant]
     Indication: PRODUCT USED FOR UNKNOWN INDICATION
     Dosage: UNK, UNKNOWN
     Route: 065
  5. MIDODRINE HYDROCHLORIDE [Suspect]
     Dosage: 15 MG, 3X/DAY:TID
     Route: 048
     Dates: start: 20120201, end: 20120320
  6. TOLTERODINE TARTRATE [Concomitant]
     Indication: PRODUCT USED FOR UNKNOWN INDICATION
     Dosage: 2 DF, UNKNOWN
     Route: 065
  7. PREDNISOLONE [Concomitant]
     Indication: PRODUCT USED FOR UNKNOWN INDICATION
     Dosage: 3 DF, UNKNOWN
     Route: 065
  8. LEVOTHYROXINE SODIUM [Concomitant]
     Indication: UNEVALUABLE EVENT
     Dosage: 1 DF, UNKNOWN
     Route: 065
  9. MIDODRINE HYDROCHLORIDE [Suspect]
     Indication: ORTHOSTATIC HYPOTENSION
     Dosage: 5 MG, 3X/DAY:TID
     Route: 065

REACTIONS (11)
  - BLOOD PRESSURE FLUCTUATION [None]
  - ASTHENIA [None]
  - DYSARTHRIA [None]
  - SPEECH DISORDER [None]
  - LOSS OF CONSCIOUSNESS [None]
  - DIPLOPIA [None]
  - POLLAKIURIA [None]
  - DYSSTASIA [None]
  - MUSCULAR WEAKNESS [None]
  - DYSPHAGIA [None]
  - MICTURITION DISORDER [None]
